FAERS Safety Report 23229221 (Version 1)
Quarter: 2023Q4

REPORT INFORMATION
  Report Type: Spontaneous
  Country: BW (occurrence: BW)
  Receive Date: 20231127
  Receipt Date: 20231127
  Transmission Date: 20240109
  Serious: Yes (Hospitalization, Other)
  Sender: FDA-Public Use
  Company Number: BW-NOVOPROD-1140726

PATIENT
  Age: 36 Year
  Sex: Female

DRUGS (4)
  1. ACTRAPID [Suspect]
     Active Substance: INSULIN HUMAN
     Indication: Diabetes mellitus
     Dosage: UNK
  2. ACTRAPID [Suspect]
     Active Substance: INSULIN HUMAN
     Dosage: UNK
  3. ACTRAPHANE [Suspect]
     Active Substance: INSULIN HUMAN
     Indication: Diabetes mellitus
     Dosage: UNK
  4. ACTRAPHANE [Suspect]
     Active Substance: INSULIN HUMAN
     Dosage: UNK

REACTIONS (3)
  - Diabetic ketoacidosis [Unknown]
  - Hypoglycaemia [Recovered/Resolved]
  - Maternal exposure during pregnancy [Unknown]
